FAERS Safety Report 5278907-5 (Version None)
Quarter: 2007Q1

REPORT INFORMATION
  Report Type: 
  Country: None (occurrence: None)
  Receive Date: 20070328
  Receipt Date: 20070316
  Transmission Date: 20070707
  Serious: Yes (Death)
  Sender: FDA-Public Use
  Company Number: GB-ROCHE-482087

PATIENT
  Age: 56 Year
  Sex: Female

DRUGS (7)
  1. CAPECITABINE [Suspect]
     Indication: COLON CANCER
     Dosage: 2000 MG GIVEN IN THE MORNING AND 2500 MG GIVEN IN THE EVENING. 1250 MG/M2 GIVEN TWICE DAILY FOR 14 +
     Route: 048
     Dates: start: 20070103
  2. BEVACIZUMAB [Suspect]
     Indication: COLON CANCER
     Dosage: 7.5 MG/KG ADMINISTERED EVERY THREE WEEKS AS PER PROTOCOL.
     Route: 042
     Dates: start: 20070103
  3. OMEPRAZOLE [Concomitant]
     Route: 048
     Dates: end: 20070119
  4. DIFFLAM ORAL RINSE [Concomitant]
     Indication: STOMATITIS
     Route: 048
     Dates: start: 20070116
  5. FLUCONAZOLE [Concomitant]
     Indication: STOMATITIS
     Route: 048
     Dates: start: 20070116
  6. ORABASE [Concomitant]
     Indication: STOMATITIS
     Route: 048
     Dates: start: 20070116, end: 20070119
  7. ACETAMINOPHEN [Concomitant]
     Indication: STOMATITIS
     Route: 048
     Dates: start: 20070116

REACTIONS (1)
  - DEATH [None]
